FAERS Safety Report 7682936-1 (Version None)
Quarter: 2011Q3

REPORT INFORMATION
  Report Type: 
  Country: None (occurrence: None)
  Receive Date: 20110815
  Receipt Date: 20110809
  Transmission Date: 20111222
  Serious: Yes (Hospitalization)
  Sender: FDA-Public Use
  Company Number: BR-ROCHE-795829

PATIENT
  Sex: Female
  Weight: 70 kg

DRUGS (6)
  1. PREDNISONE [Concomitant]
  2. LASIX [Concomitant]
  3. OMEPRAZOLE [Concomitant]
  4. WARFARIN SODIUM [Concomitant]
  5. CARVEDILOL [Concomitant]
  6. TOCILIZUMAB [Suspect]
     Indication: RHEUMATOID ARTHRITIS
     Route: 065
     Dates: start: 20100501, end: 20110601

REACTIONS (2)
  - BLOOD PRESSURE DECREASED [None]
  - ARRHYTHMIA [None]
